FAERS Safety Report 4362219-8 (Version None)
Quarter: 2004Q2

REPORT INFORMATION
  Report Type: 
  Country: None (occurrence: None)
  Receive Date: 20040517
  Receipt Date: 20040507
  Transmission Date: 20050107
  Serious: Yes (Other)
  Sender: FDA-Public Use
  Company Number: 2004212544GB

PATIENT
  Age: 21 Year
  Sex: Female

DRUGS (2)
  1. NICORETTE [Suspect]
     Indication: SMOKING CESSATION THERAPY
     Dosage: 15 MG, QD, TRANSDERMAL
     Route: 062
     Dates: start: 20040505
  2. VENLAFAXINE [Suspect]

REACTIONS (7)
  - CONFUSIONAL STATE [None]
  - DISORIENTATION [None]
  - DYSPNOEA [None]
  - FALL [None]
  - GASTROENTERITIS [None]
  - HYPOAESTHESIA [None]
  - VOMITING [None]
